FAERS Safety Report 8378049-6 (Version None)
Quarter: 2012Q2

REPORT INFORMATION
  Report Type: 
  Country: None (occurrence: None)
  Receive Date: 20120522
  Receipt Date: 20120419
  Transmission Date: 20120825
  Serious: Yes (Hospitalization)
  Sender: FDA-Public Use
  Company Number: JP-VALEANT-2012VX002171

PATIENT
  Age: 55 Year
  Sex: Female

DRUGS (6)
  1. OXALIPLATIN [Suspect]
     Route: 065
     Dates: start: 20070901
  2. FLUOROURACIL [Suspect]
     Route: 065
     Dates: start: 20070901
  3. LEUCOVORIN CALCIUM [Suspect]
     Route: 065
     Dates: start: 20070901
  4. LEUCOVORIN CALCIUM [Suspect]
     Route: 065
  5. OXALIPLATIN [Suspect]
     Route: 065
  6. FLUOROURACIL [Suspect]
     Route: 065

REACTIONS (4)
  - THROMBOCYTOPENIA [None]
  - NEUROTOXICITY [None]
  - HAEMORRHAGIC DIATHESIS [None]
  - NEUTROPENIA [None]
